FAERS Safety Report 16950885 (Version 1)
Quarter: 2019Q4

REPORT INFORMATION
  Report Type: Spontaneous
  Country: US (occurrence: US)
  Receive Date: 20191022
  Receipt Date: 20191022
  Transmission Date: 20200122
  Serious: Yes (Hospitalization)
  Sender: FDA-Public Use
  Company Number: None

PATIENT
  Age: 54 Year
  Sex: Female

DRUGS (10)
  1. ROPINIROLE. [Concomitant]
     Active Substance: ROPINIROLE
  2. LATANOPROST SOL [Concomitant]
  3. HUMIRA [Suspect]
     Active Substance: ADALIMUMAB
     Indication: CROHN^S DISEASE
     Dosage: ?          OTHER FREQUENCY:WEEKLY;?
     Route: 058
     Dates: start: 20180605
  4. PAROXETINE. [Concomitant]
     Active Substance: PAROXETINE
  5. PENTASA [Concomitant]
     Active Substance: MESALAMINE
  6. AMPLOD/BENZAP CAP [Concomitant]
  7. HYDROCO/APAP TAB [Concomitant]
  8. PREGABALIN. [Concomitant]
     Active Substance: PREGABALIN
  9. NICOTINE TD PATCH [Concomitant]
  10. ESTRADIOL TAB [Concomitant]

REACTIONS (7)
  - Pain [None]
  - Headache [None]
  - Crohn^s disease [None]
  - Hot flush [None]
  - Product dose omission [None]
  - Abdominal pain upper [None]
  - Fatigue [None]

NARRATIVE: CASE EVENT DATE: 20191021
